FAERS Safety Report 10863632 (Version 2)
Quarter: 2015Q1

REPORT INFORMATION
  Report Type: Report from Study
  Country: JP (occurrence: JP)
  Receive Date: 20150224
  Receipt Date: 20150318
  Transmission Date: 20150721
  Serious: No
  Sender: FDA-Public Use
  Company Number: JP-EISAI MEDICAL RESEARCH-EC-2015-004271

PATIENT
  Age: 91 Year
  Sex: Female

DRUGS (6)
  1. ARICEPT [Suspect]
     Active Substance: DONEPEZIL HYDROCHLORIDE
     Indication: DEMENTIA ALZHEIMER^S TYPE
     Route: 048
     Dates: start: 20110401, end: 20140813
  2. AMARYL [Concomitant]
     Active Substance: GLIMEPIRIDE
  3. BENITOWA [Concomitant]
  4. EQUA [Concomitant]
     Active Substance: VILDAGLIPTIN
  5. GLACTIV [Concomitant]
     Active Substance: SITAGLIPTIN
  6. VOGLIBOSE [Concomitant]
     Active Substance: VOGLIBOSE

REACTIONS (1)
  - Electrocardiogram QT prolonged [Recovered/Resolved]

NARRATIVE: CASE EVENT DATE: 20140201
